FAERS Safety Report 8074683-1 (Version None)
Quarter: 2012Q1

REPORT INFORMATION
  Report Type: 
  Country: None (occurrence: None)
  Receive Date: 20120126
  Receipt Date: 20120119
  Transmission Date: 20120608
  Serious: Yes (Other)
  Sender: FDA-Public Use
  Company Number: US-RB-035236-11

PATIENT
  Age: 61 Year
  Sex: Male

DRUGS (3)
  1. SUBOXONE [Suspect]
     Dosage: 8-12 MG DAILY
     Route: 060
     Dates: start: 20120118
  2. SUBOXONE [Suspect]
     Indication: DRUG DEPENDENCE
     Dosage: 16-24 MG DAILY
     Route: 060
     Dates: start: 20110201, end: 20110101
  3. ANTIHYPERTENSIVE [Concomitant]
     Indication: HYPERTENSION
     Route: 065

REACTIONS (7)
  - PAIN [None]
  - DRUG ABUSE [None]
  - FALL [None]
  - INTENTIONAL DRUG MISUSE [None]
  - WRONG TECHNIQUE IN DRUG USAGE PROCESS [None]
  - JAW FRACTURE [None]
  - OSTEOMYELITIS [None]
